FAERS Safety Report 22761265 (Version 8)
Quarter: 2023Q4

REPORT INFORMATION
  Report Type: Report from Study
  Country: US (occurrence: None)
  Receive Date: 20230728
  Receipt Date: 20231009
  Transmission Date: 20240109
  Serious: Yes (Hospitalization)
  Sender: FDA-Public Use
  Company Number: US-ROCHE-3245684

PATIENT
  Age: 53 Year
  Sex: Male
  Weight: 72.5 kg

DRUGS (112)
  1. GLOFITAMAB [Suspect]
     Active Substance: GLOFITAMAB
     Indication: Diffuse large B-cell lymphoma
     Route: 042
     Dates: start: 20221122
  2. GLOFITAMAB [Suspect]
     Active Substance: GLOFITAMAB
     Dosage: START DATE OF MOST RECENT DOSE (30 MG) OF GLOFITAMAB PRIOR TO SAE: 14/DEC/2022?START DATE OF MOST RE
     Route: 042
  3. TOCILIZUMAB [Suspect]
     Active Substance: TOCILIZUMAB
     Indication: Cytokine release syndrome
     Dosage: START DATE OF MOST RECENT DOSE OF STUDY DRUG PRIOR TO SAE: 16/DEC/2022, DOSE LAST STUDY DRUG ADMIN P
     Route: 042
     Dates: start: 20221216
  4. RITUXIMAB [Suspect]
     Active Substance: RITUXIMAB
     Indication: Diffuse large B-cell lymphoma
     Dosage: START DATE OF MOST RECENT DOSE (375 MG/M2) OF STUDY DRUG PRIOR TO SAE 06/DEC/2022, 27/DEC/2022.
     Route: 041
     Dates: start: 20221004
  5. RITUXIMAB [Suspect]
     Active Substance: RITUXIMAB
     Dosage: DOSE LAST STUDY DRUG ADMIN PRIOR AE 700MG/M2
     Route: 041
  6. CYCLOPHOSPHAMIDE [Suspect]
     Active Substance: CYCLOPHOSPHAMIDE
     Indication: Diffuse large B-cell lymphoma
     Dosage: START DATE OF MOST RECENT DOSE 750 MG/M2 OF CYCLOPHOSPHAMIDE PRIOR TO SAE: 06/DEC/2022?START DATE OF
     Route: 042
     Dates: start: 20221004
  7. CYCLOPHOSPHAMIDE [Suspect]
     Active Substance: CYCLOPHOSPHAMIDE
     Dosage: START DATE OF MOST RECENT DOSE OF STUDY DRUG PRIOR TO SAE (1400 MG /M2) 06-DEC-2022
     Route: 042
  8. DOXORUBICIN [Suspect]
     Active Substance: DOXORUBICIN
     Indication: Diffuse large B-cell lymphoma
     Dosage: START DATE OF MOST RECENT DOSE OF DOXORUBICIN PRIOR TO SAE: 27/DEC/2022
     Route: 042
     Dates: start: 20221004
  9. DOXORUBICIN [Suspect]
     Active Substance: DOXORUBICIN
     Dosage: START DATE OF MOST RECENT DOSE OF STUDY DRUG PRIOR TO SAE (90 MG /M2) 06-DEC-2022
     Route: 042
  10. PREDNISONE [Suspect]
     Active Substance: PREDNISONE
     Indication: Diffuse large B-cell lymphoma
     Dosage: START DATE OF MOST RECENT DOSE 100 MG OF PREDNISONE PRIOR TO SAE: 06/DEC/2022?START DATE OF MOST REC
     Route: 042
     Dates: start: 20221004
  11. METHYLPREDNISOLONE [Suspect]
     Active Substance: METHYLPREDNISOLONE
     Indication: Diffuse large B-cell lymphoma
     Route: 042
     Dates: start: 20221025
  12. METHYLPREDNISOLONE [Suspect]
     Active Substance: METHYLPREDNISOLONE
     Dosage: START DATE OF MOST RECENT DOSE 125 MG OF METHYLPREDNISOLONE PRIOR TO SAE: 14/DEC/2022, 25-OCT-2022
     Route: 042
  13. VINCRISTINE [Suspect]
     Active Substance: VINCRISTINE
     Indication: Diffuse large B-cell lymphoma
     Dosage: START DATE OF MOST RECENT DOSE OF VINCRISTINE PRIOR TO SAE: 27/DEC/2022
     Route: 042
     Dates: start: 20221004
  14. VINCRISTINE [Suspect]
     Active Substance: VINCRISTINE
     Dosage: START DATE OF MOST RECENT DOSE 2 OF VINCRISTINE PRIOR TO SAE: 06/DEC/2022?START DATE OF MOST RECENT
     Route: 042
  15. LIDOCAINE [Concomitant]
     Active Substance: LIDOCAINE
     Indication: Stomatitis
     Route: 048
     Dates: start: 20221222, end: 20230125
  16. ATORVASTATIN [Concomitant]
     Active Substance: ATORVASTATIN
     Indication: Blood cholesterol increased
     Route: 048
     Dates: start: 20000901
  17. HYDROCHLOROTHIAZIDE [Concomitant]
     Active Substance: HYDROCHLOROTHIAZIDE
     Indication: Hypertension
     Route: 048
     Dates: start: 20160901
  18. HYDROCHLOROTHIAZIDE [Concomitant]
     Active Substance: HYDROCHLOROTHIAZIDE
     Route: 048
     Dates: start: 20221213, end: 20221214
  19. HYDROCHLOROTHIAZIDE [Concomitant]
     Active Substance: HYDROCHLOROTHIAZIDE
     Route: 048
     Dates: start: 20230104, end: 20230106
  20. ACYCLOVIR [Concomitant]
     Active Substance: ACYCLOVIR
     Indication: Infection
     Route: 048
     Dates: start: 20221004
  21. TRAVATAN [Concomitant]
     Active Substance: TRAVOPROST
     Dosage: 1 OTHER
     Route: 047
     Dates: start: 20221004
  22. PREDNISONE [Concomitant]
     Active Substance: PREDNISONE
     Indication: Prophylaxis
     Route: 048
     Dates: start: 20221007
  23. SENNA [Concomitant]
     Active Substance: SENNA LEAF\SENNOSIDES\SENNOSIDES A AND B
     Indication: Constipation
     Route: 048
     Dates: start: 20221004
  24. POLYETHYLENE GLYCOL [Concomitant]
     Active Substance: POLYETHYLENE GLYCOL
     Indication: Constipation
     Route: 048
     Dates: start: 20221006
  25. ALLOPURINOL [Concomitant]
     Active Substance: ALLOPURINOL
     Indication: Blood uric acid
     Route: 048
     Dates: start: 20220929
  26. PALONOSETRON [Concomitant]
     Active Substance: PALONOSETRON
     Route: 042
     Dates: start: 20221004
  27. PALONOSETRON [Concomitant]
     Active Substance: PALONOSETRON
     Dosage: 250 OTHER
     Route: 013
     Dates: start: 20221206, end: 20221206
  28. PALONOSETRON [Concomitant]
     Active Substance: PALONOSETRON
     Dosage: 250 OTHER
     Route: 042
     Dates: start: 20221115, end: 20221115
  29. PALONOSETRON [Concomitant]
     Active Substance: PALONOSETRON
     Dosage: 250 OTHER
     Route: 042
     Dates: start: 20230117, end: 20230117
  30. PALONOSETRON [Concomitant]
     Active Substance: PALONOSETRON
     Dosage: 250 OTHER
     Route: 042
     Dates: start: 20221227, end: 20230117
  31. DIPHENHYDRAMINE [Concomitant]
     Active Substance: DIPHENHYDRAMINE
     Indication: Stomatitis
     Route: 042
     Dates: start: 20230207, end: 20230207
  32. DIPHENHYDRAMINE [Concomitant]
     Active Substance: DIPHENHYDRAMINE
     Route: 048
     Dates: start: 20221215, end: 20221215
  33. DIPHENHYDRAMINE [Concomitant]
     Active Substance: DIPHENHYDRAMINE
     Route: 048
     Dates: start: 20221216, end: 20221216
  34. DIPHENHYDRAMINE [Concomitant]
     Active Substance: DIPHENHYDRAMINE
     Dosage: NEXT DOSE RECEIVED ON 27/DEC/2022
     Route: 048
     Dates: start: 20221222, end: 20230125
  35. DIPHENHYDRAMINE [Concomitant]
     Active Substance: DIPHENHYDRAMINE
     Route: 042
     Dates: start: 20221122, end: 20221122
  36. DIPHENHYDRAMINE [Concomitant]
     Active Substance: DIPHENHYDRAMINE
     Route: 042
     Dates: start: 20221129, end: 20221129
  37. DIPHENHYDRAMINE [Concomitant]
     Active Substance: DIPHENHYDRAMINE
     Route: 048
     Dates: start: 20221214, end: 20221216
  38. DIPHENHYDRAMINE [Concomitant]
     Active Substance: DIPHENHYDRAMINE
     Route: 042
     Dates: start: 20221206, end: 20221206
  39. DIPHENHYDRAMINE [Concomitant]
     Active Substance: DIPHENHYDRAMINE
     Route: 042
     Dates: start: 20221115, end: 20221115
  40. DIPHENHYDRAMINE [Concomitant]
     Active Substance: DIPHENHYDRAMINE
     Route: 042
     Dates: start: 20230411, end: 20230411
  41. DIPHENHYDRAMINE [Concomitant]
     Active Substance: DIPHENHYDRAMINE
     Route: 042
     Dates: start: 20230104, end: 20230411
  42. DIPHENHYDRAMINE [Concomitant]
     Active Substance: DIPHENHYDRAMINE
     Route: 042
     Dates: start: 20230104, end: 20230104
  43. DIPHENHYDRAMINE [Concomitant]
     Active Substance: DIPHENHYDRAMINE
     Route: 042
     Dates: start: 20230117, end: 20230117
  44. DIPHENHYDRAMINE [Concomitant]
     Active Substance: DIPHENHYDRAMINE
     Route: 042
     Dates: start: 20230124, end: 20230124
  45. ACETAMINOPHEN [Concomitant]
     Active Substance: ACETAMINOPHEN
     Indication: Pyrexia
     Route: 048
     Dates: start: 20221215, end: 20221215
  46. ACETAMINOPHEN [Concomitant]
     Active Substance: ACETAMINOPHEN
     Indication: Pain
     Route: 048
     Dates: start: 20230207, end: 20230207
  47. ACETAMINOPHEN [Concomitant]
     Active Substance: ACETAMINOPHEN
     Route: 048
     Dates: start: 20221214, end: 20221214
  48. ACETAMINOPHEN [Concomitant]
     Active Substance: ACETAMINOPHEN
     Route: 048
     Dates: start: 20221122, end: 20221122
  49. ACETAMINOPHEN [Concomitant]
     Active Substance: ACETAMINOPHEN
     Route: 048
     Dates: start: 20221129, end: 20221129
  50. ACETAMINOPHEN [Concomitant]
     Active Substance: ACETAMINOPHEN
     Route: 048
     Dates: start: 20221214, end: 20221215
  51. ACETAMINOPHEN [Concomitant]
     Active Substance: ACETAMINOPHEN
     Route: 048
     Dates: start: 20221206, end: 20221206
  52. ACETAMINOPHEN [Concomitant]
     Active Substance: ACETAMINOPHEN
     Route: 048
     Dates: start: 20230104, end: 20230104
  53. ACETAMINOPHEN [Concomitant]
     Active Substance: ACETAMINOPHEN
     Route: 048
     Dates: start: 20221227, end: 20221227
  54. ACETAMINOPHEN [Concomitant]
     Active Substance: ACETAMINOPHEN
     Route: 048
     Dates: start: 20230105, end: 20230105
  55. ACETAMINOPHEN [Concomitant]
     Active Substance: ACETAMINOPHEN
     Route: 048
     Dates: start: 20230117, end: 20230117
  56. ACETAMINOPHEN [Concomitant]
     Active Substance: ACETAMINOPHEN
     Route: 048
     Dates: start: 20230124, end: 20230124
  57. RAMELTEON [Concomitant]
     Active Substance: RAMELTEON
     Indication: Insomnia
     Route: 048
     Dates: start: 20221213, end: 20221213
  58. RAMELTEON [Concomitant]
     Active Substance: RAMELTEON
     Route: 048
     Dates: start: 20221004
  59. RAMELTEON [Concomitant]
     Active Substance: RAMELTEON
     Dosage: NEXT DOSE ON 03/JAN/2023
     Route: 048
     Dates: start: 20221216, end: 20221216
  60. POTASSIUM CHLORIDE [Concomitant]
     Active Substance: POTASSIUM CHLORIDE
     Dosage: 40 TABLET
     Route: 048
     Dates: start: 20221215, end: 20221216
  61. POTASSIUM CHLORIDE [Concomitant]
     Active Substance: POTASSIUM CHLORIDE
     Dosage: 10 TABLET?NEXT DOSE ON 06/JAN/2023
     Route: 048
     Dates: start: 20221218, end: 20221218
  62. DOCUSATE SODIUM [Concomitant]
     Active Substance: DOCUSATE SODIUM
     Indication: Constipation
     Route: 048
     Dates: start: 20221215, end: 20230113
  63. DOCUSATE SODIUM [Concomitant]
     Active Substance: DOCUSATE SODIUM
     Route: 048
     Dates: start: 20221123, end: 20221124
  64. DOCUSATE SODIUM [Concomitant]
     Active Substance: DOCUSATE SODIUM
     Route: 048
     Dates: start: 20221122, end: 20221123
  65. DOCUSATE SODIUM [Concomitant]
     Active Substance: DOCUSATE SODIUM
     Route: 048
     Dates: start: 20221217, end: 20221218
  66. DOCUSATE SODIUM [Concomitant]
     Active Substance: DOCUSATE SODIUM
     Route: 048
     Dates: start: 20230104, end: 20230104
  67. MAGNESIUM SULFATE [Concomitant]
     Active Substance: MAGNESIUM SULFATE
     Dosage: 2 OTHER
     Route: 042
     Dates: start: 20221216, end: 20221216
  68. LACTATED RINGERS SOLUTION [Concomitant]
     Active Substance: CALCIUM CHLORIDE\POTASSIUM CHLORIDE\SODIUM CHLORIDE\SODIUM LACTATE
     Dates: start: 20221216, end: 20221216
  69. LORAZEPAM [Concomitant]
     Active Substance: LORAZEPAM
     Indication: Insomnia
     Route: 048
     Dates: start: 20221218, end: 20221218
  70. LORAZEPAM [Concomitant]
     Active Substance: LORAZEPAM
     Indication: Anxiety
  71. ATIVAN [Concomitant]
     Active Substance: LORAZEPAM
     Route: 048
     Dates: start: 20221227, end: 20221231
  72. ONDANSETRON [Concomitant]
     Active Substance: ONDANSETRON
     Indication: Nausea
     Dates: start: 20221006, end: 20221124
  73. ONDANSETRON [Concomitant]
     Active Substance: ONDANSETRON
     Indication: Vomiting
     Route: 048
     Dates: start: 20221006
  74. ONDANSETRON [Concomitant]
     Active Substance: ONDANSETRON
     Route: 048
     Dates: start: 20230104, end: 20230104
  75. SODIUM CHLORIDE [Concomitant]
     Active Substance: SODIUM CHLORIDE
     Route: 042
     Dates: start: 20221122, end: 20221122
  76. SODIUM CHLORIDE [Concomitant]
     Active Substance: SODIUM CHLORIDE
     Route: 042
     Dates: start: 20221206, end: 20221206
  77. SODIUM CHLORIDE [Concomitant]
     Active Substance: SODIUM CHLORIDE
     Route: 042
     Dates: start: 20221115, end: 20221115
  78. SODIUM CHLORIDE [Concomitant]
     Active Substance: SODIUM CHLORIDE
     Route: 042
     Dates: start: 20221128, end: 20221128
  79. SODIUM CHLORIDE [Concomitant]
     Active Substance: SODIUM CHLORIDE
     Route: 042
     Dates: start: 20221218, end: 20221218
  80. SODIUM CHLORIDE [Concomitant]
     Active Substance: SODIUM CHLORIDE
     Route: 042
     Dates: start: 20221227, end: 20221227
  81. SODIUM CHLORIDE [Concomitant]
     Active Substance: SODIUM CHLORIDE
     Route: 042
     Dates: start: 20230104, end: 20230104
  82. SODIUM CHLORIDE [Concomitant]
     Active Substance: SODIUM CHLORIDE
     Route: 042
     Dates: start: 20230117, end: 20230117
  83. MAGNESIUM [Concomitant]
     Active Substance: MAGNESIUM
     Route: 048
     Dates: start: 20221218, end: 20221218
  84. VITAMIN D3 [Concomitant]
     Active Substance: CHOLECALCIFEROL
     Dosage: 25 OTHER
     Route: 048
  85. PEPCID [Concomitant]
     Active Substance: FAMOTIDINE
     Route: 048
     Dates: start: 20221003
  86. TADALAFIL [Concomitant]
     Active Substance: TADALAFIL
     Indication: Erectile dysfunction
     Route: 048
  87. MELATONIN [Concomitant]
     Active Substance: MELATONIN
     Indication: Insomnia
     Route: 048
  88. PEGFILGRASTIM [Concomitant]
     Active Substance: PEGFILGRASTIM
     Dosage: NEXT DOSE ON 28/DEC/2022
     Route: 058
     Dates: start: 20221206, end: 20221206
  89. PEGFILGRASTIM [Concomitant]
     Active Substance: PEGFILGRASTIM
     Route: 058
     Dates: start: 20221115, end: 20221115
  90. PEGFILGRASTIM [Concomitant]
     Active Substance: PEGFILGRASTIM
     Route: 058
     Dates: start: 20230117, end: 20230117
  91. APREPITANT [Concomitant]
     Active Substance: APREPITANT
     Route: 042
     Dates: start: 20221206, end: 20221206
  92. APREPITANT [Concomitant]
     Active Substance: APREPITANT
     Route: 042
     Dates: start: 20221115, end: 20221115
  93. APREPITANT [Concomitant]
     Active Substance: APREPITANT
     Route: 042
     Dates: start: 20230117, end: 20230117
  94. APREPITANT [Concomitant]
     Active Substance: APREPITANT
     Route: 042
     Dates: start: 20221227, end: 20221227
  95. LOSARTAN [Concomitant]
     Active Substance: LOSARTAN
     Indication: Hypertension
     Route: 048
     Dates: start: 20221213, end: 20221214
  96. LOSARTAN [Concomitant]
     Active Substance: LOSARTAN
     Route: 048
     Dates: start: 20221120, end: 20221129
  97. LOSARTAN [Concomitant]
     Active Substance: LOSARTAN
     Route: 048
     Dates: start: 20230103, end: 20230105
  98. DEXAMETHASONE [Concomitant]
     Active Substance: DEXAMETHASONE
     Route: 042
     Dates: start: 20221122, end: 20221122
  99. DEXAMETHASONE [Concomitant]
     Active Substance: DEXAMETHASONE
     Route: 042
     Dates: start: 20230411, end: 20230411
  100. DEXAMETHASONE [Concomitant]
     Active Substance: DEXAMETHASONE
     Route: 042
     Dates: start: 20230320, end: 20230320
  101. DEXAMETHASONE [Concomitant]
     Active Substance: DEXAMETHASONE
     Route: 042
     Dates: start: 20230228, end: 20230228
  102. DEXAMETHASONE [Concomitant]
     Active Substance: DEXAMETHASONE
     Route: 042
     Dates: start: 20230124, end: 20230124
  103. DEXAMETHASONE [Concomitant]
     Active Substance: DEXAMETHASONE
     Route: 042
     Dates: start: 20230104, end: 20230104
  104. DEXAMETHASONE [Concomitant]
     Active Substance: DEXAMETHASONE
     Route: 042
     Dates: start: 20230124, end: 20230124
  105. ENOXAPARIN [Concomitant]
     Active Substance: ENOXAPARIN
     Route: 058
     Dates: start: 20221129, end: 20221129
  106. ENOXAPARIN [Concomitant]
     Active Substance: ENOXAPARIN
     Route: 058
     Dates: start: 20221216, end: 20221218
  107. ENOXAPARIN [Concomitant]
     Active Substance: ENOXAPARIN
     Route: 058
     Dates: start: 20230104, end: 20230104
  108. PANTOPRAZOLE [Concomitant]
     Active Substance: PANTOPRAZOLE
     Indication: Gastrooesophageal reflux disease
     Route: 048
     Dates: start: 20221216, end: 20221216
  109. PANTOPRAZOLE [Concomitant]
     Active Substance: PANTOPRAZOLE
     Route: 048
     Dates: start: 20230104, end: 20230104
  110. CHOLECALCIFEROL [Concomitant]
     Active Substance: CHOLECALCIFEROL
     Dosage: 1000 OTHER
     Route: 048
     Dates: start: 20221217, end: 20221217
  111. CHOLECALCIFEROL [Concomitant]
     Active Substance: CHOLECALCIFEROL
     Route: 048
     Dates: start: 20221216, end: 20221216
  112. TRAVOPROST [Concomitant]
     Active Substance: TRAVOPROST
     Route: 047
     Dates: start: 20230103, end: 20230104

REACTIONS (4)
  - Cytokine release syndrome [Recovered/Resolved]
  - Sinus tachycardia [Recovered/Resolved]
  - Aspartate aminotransferase increased [Recovered/Resolved]
  - Alanine aminotransferase increased [Recovered/Resolved]

NARRATIVE: CASE EVENT DATE: 20221215
